FAERS Safety Report 9186979 (Version 1)
Quarter: 2013Q1

REPORT INFORMATION
  Report Type: Spontaneous
  Country: US (occurrence: US)
  Receive Date: 20130325
  Receipt Date: 20130325
  Transmission Date: 20140127
  Serious: No
  Sender: FDA-Public Use
  Company Number: US-PFIZER INC-2013093690

PATIENT
  Age: 51 Year
  Sex: Female
  Weight: 68 kg

DRUGS (11)
  1. CHANTIX [Suspect]
     Indication: SMOKING CESSATION THERAPY
     Dosage: 0.5 MG, 1X/DAY
     Route: 048
  2. CHANTIX [Suspect]
     Dosage: 0.5 MG, 1X/DAY
     Route: 048
  3. CHANTIX [Suspect]
     Dosage: 0.5 MG, 1X/DAY
     Route: 048
  4. REMERON [Concomitant]
     Indication: SLEEP DISORDER
     Dosage: UNK
  5. TRAZODONE [Concomitant]
     Indication: SLEEP DISORDER
     Dosage: UNK
  6. LUNESTA [Concomitant]
     Indication: SLEEP DISORDER
     Dosage: UNK
  7. AMBIEN [Concomitant]
     Indication: SLEEP DISORDER
     Dosage: UNK
  8. XANAX [Concomitant]
     Indication: ANXIETY
     Dosage: UNK
  9. XANAX [Concomitant]
     Indication: DEPRESSION
  10. PERCOCET [Concomitant]
     Indication: ARTHRALGIA
     Dosage: UNK
  11. ETODOLAC [Concomitant]
     Indication: INFLAMMATION
     Dosage: UNK

REACTIONS (4)
  - Arthritis [Not Recovered/Not Resolved]
  - Abnormal dreams [Recovered/Resolved]
  - Nausea [Recovered/Resolved]
  - Agitation [Recovered/Resolved]
